FAERS Safety Report 5099305-3 (Version None)
Quarter: 2006Q3

REPORT INFORMATION
  Report Type: 
  Country: None (occurrence: None)
  Receive Date: 20060728
  Receipt Date: 20060425
  Transmission Date: 20061208
  Serious: No
  Sender: FDA-Public Use
  Company Number: COT_0513_2006

PATIENT
  Age: 60 Year
  Sex: Female
  Weight: 81.6475 kg

DRUGS (17)
  1. VENTAVIS [Suspect]
     Indication: PULMONARY HYPERTENSION
     Dosage: 5 MCG 6XD IH
     Dates: start: 20060407, end: 20060425
  2. SITAXSENTAN [Concomitant]
  3. SILDENAFIL [Concomitant]
  4. FUROSEMIDE [Concomitant]
  5. K-DUR 10 [Concomitant]
  6. SPIRONOLACTONE [Concomitant]
  7. WARFARIN SODIUM [Concomitant]
  8. INDOCIN [Concomitant]
  9. NORVASC [Concomitant]
  10. DETROL LA [Concomitant]
  11. PROZAC [Concomitant]
  12. NEXIUM [Concomitant]
  13. FLONASE [Concomitant]
  14. CLARITIN [Concomitant]
  15. OXYGEN [Concomitant]
  16. FEOSOL [Concomitant]
  17. ASCORBIC ACID [Concomitant]

REACTIONS (4)
  - DIZZINESS [None]
  - INSOMNIA [None]
  - NAUSEA [None]
  - SOMNOLENCE [None]
